FAERS Safety Report 7792025-3 (Version None)
Quarter: 2011Q4

REPORT INFORMATION
  Report Type: 
  Country: None (occurrence: None)
  Receive Date: 20111003
  Receipt Date: 20110928
  Transmission Date: 20120403
  Serious: Yes (Hospitalization, Other)
  Sender: FDA-Public Use
  Company Number: RO-ABBOTT-11P-135-0859094-00

PATIENT
  Sex: Male
  Weight: 90 kg

DRUGS (6)
  1. ETORICOXIBUM [Concomitant]
     Indication: PRODUCT USED FOR UNKNOWN INDICATION
     Dosage: COX-2 INHIBITOR
     Dates: start: 20091201
  2. QUINAPRILUM [Concomitant]
     Indication: HYPERTENSION
     Route: 048
     Dates: start: 20100820
  3. HUMIRA [Suspect]
     Indication: ANKYLOSING SPONDYLITIS
     Route: 058
     Dates: start: 20100114
  4. SULFASALAZINUM [Concomitant]
     Indication: PRODUCT USED FOR UNKNOWN INDICATION
     Dosage: DMARD
     Dates: start: 20061107
  5. SIMVASTATINUM [Concomitant]
     Indication: DYSLIPIDAEMIA
     Route: 048
     Dates: start: 20100820
  6. BETAXOLOLUM [Concomitant]
     Indication: HYPERTENSION
     Route: 048
     Dates: start: 20100820

REACTIONS (8)
  - CHILLS [None]
  - VERTIGO [None]
  - DYSPNOEA [None]
  - FATIGUE [None]
  - PYREXIA [None]
  - ABDOMINAL PAIN UPPER [None]
  - NAUSEA [None]
  - PRODUCTIVE COUGH [None]
